FAERS Safety Report 7726980-4 (Version None)
Quarter: 2011Q3

REPORT INFORMATION
  Report Type: 
  Country: None (occurrence: None)
  Receive Date: 20110902
  Receipt Date: 20110830
  Transmission Date: 20111222
  Serious: Yes (Hospitalization)
  Sender: FDA-Public Use
  Company Number: FR-PFIZER INC-2011201459

PATIENT
  Age: 7 Year
  Sex: Male
  Weight: 27 kg

DRUGS (4)
  1. ADVIL LIQUI-GELS [Suspect]
     Dosage: UNK
     Dates: start: 20110716, end: 20110718
  2. ACETAMINOPHEN [Suspect]
     Indication: NASOPHARYNGITIS
     Dosage: UNK
     Dates: start: 20110716, end: 20110718
  3. CEFIXIME [Suspect]
     Dosage: UNK
     Dates: start: 20110716, end: 20110718
  4. PREDNISOLONE [Suspect]
     Dosage: UNK
     Dates: start: 20110716, end: 20110718

REACTIONS (3)
  - EYE DISORDER [None]
  - STEVENS-JOHNSON SYNDROME [None]
  - ACUTE RESPIRATORY FAILURE [None]
